FAERS Safety Report 22796086 (Version 2)
Quarter: 2023Q4

REPORT INFORMATION
  Report Type: Spontaneous
  Country: US (occurrence: US)
  Receive Date: 20230808
  Receipt Date: 20231026
  Transmission Date: 20240109
  Serious: No
  Sender: FDA-Public Use
  Company Number: US-BRISTOL-MYERS SQUIBB COMPANY-2023-110999

PATIENT
  Age: 72 Year
  Sex: Male
  Weight: 85.72 kg

DRUGS (2)
  1. REVLIMID [Suspect]
     Active Substance: LENALIDOMIDE
     Indication: Plasma cell myeloma
     Route: 048
     Dates: start: 20230720
  2. REVLIMID [Suspect]
     Active Substance: LENALIDOMIDE
     Dosage: FREQ: DAILY 21 DAYS ON 7 DAYS OF.
     Route: 048
     Dates: start: 20230721

REACTIONS (2)
  - Diarrhoea [Recovered/Resolved]
  - Muscle spasms [Unknown]
